FAERS Safety Report 18863923 (Version 1)
Quarter: 2021Q1

REPORT INFORMATION
  Report Type: Spontaneous
  Country: GB (occurrence: GB)
  Receive Date: 20210209
  Receipt Date: 20210209
  Transmission Date: 20210420
  Serious: Yes (Disabling, Other)
  Sender: FDA-Public Use
  Company Number: GB-AUROBINDO-AUR-APL-2021-004792

PATIENT
  Age: 79 Year
  Sex: Male

DRUGS (7)
  1. RAMIPRIL. [Suspect]
     Active Substance: RAMIPRIL
     Indication: PRODUCT USED FOR UNKNOWN INDICATION
     Dosage: 1.25 MILLIGRAM, ONCE A DAY (AT NIGHT)
     Route: 048
     Dates: start: 20210123, end: 20210124
  2. METOCLOPRAMIDE. [Concomitant]
     Active Substance: METOCLOPRAMIDE
     Indication: PRODUCT USED FOR UNKNOWN INDICATION
     Dosage: 10 MILLIGRAM, 3 TIMES A DAY
     Route: 048
     Dates: start: 20210121
  3. DALTEPARIN [Concomitant]
     Active Substance: DALTEPARIN
     Indication: PROPHYLAXIS
     Dosage: 5000 INTERNATIONAL UNIT, ONCE A DAY
     Route: 058
     Dates: start: 20210121
  4. BISOPROLOL [Concomitant]
     Active Substance: BISOPROLOL
     Indication: PRODUCT USED FOR UNKNOWN INDICATION
     Dosage: 1.25 MILLIGRAM, ONCE A DAY (IN THE MORNING)
     Route: 048
     Dates: start: 20210122, end: 20210122
  5. ASPIRINE [Concomitant]
     Active Substance: ASPIRIN
     Indication: PRODUCT USED FOR UNKNOWN INDICATION
     Dosage: 75 MILLIGRAM, ONCE A DAY
     Route: 048
     Dates: start: 20210120
  6. CHLORHEXIDINE GLUCONATE. [Concomitant]
     Active Substance: CHLORHEXIDINE GLUCONATE
     Indication: PRODUCT USED FOR UNKNOWN INDICATION
     Dosage: 50 MILLILITER, ONCE A DAY (2 DOSE(S))
     Route: 061
     Dates: start: 20210119, end: 20210120
  7. LANSOPRAZOLE. [Concomitant]
     Active Substance: LANSOPRAZOLE
     Indication: PRODUCT USED FOR UNKNOWN INDICATION
     Dosage: 30 MILLIGRAM, ONCE A DAY
     Route: 048
     Dates: start: 20210120, end: 20210120

REACTIONS (1)
  - Hallucination [Recovered/Resolved]
